FAERS Safety Report 15475482 (Version 4)
Quarter: 2018Q4

REPORT INFORMATION
  Report Type: Spontaneous
  Country: US (occurrence: US)
  Receive Date: 20181008
  Receipt Date: 20181217
  Transmission Date: 20190205
  Serious: Yes (Hospitalization)
  Sender: FDA-Public Use
  Company Number: US-ACTELION-A-US2018-179669

PATIENT
  Age: 86 Year
  Sex: Female

DRUGS (1)
  1. OPSUMIT [Suspect]
     Active Substance: MACITENTAN
     Indication: PRODUCT USED FOR UNKNOWN INDICATION
     Dosage: 10 MG, QD
     Route: 048

REACTIONS (6)
  - Pulmonary oedema [Recovering/Resolving]
  - Cardiac failure congestive [Recovering/Resolving]
  - Confusional state [Recovering/Resolving]
  - Memory impairment [Recovering/Resolving]
  - Product dose omission [Unknown]
  - Dyspnoea [Recovering/Resolving]
